FAERS Safety Report 14609571 (Version 1)
Quarter: 2018Q1

REPORT INFORMATION
  Report Type: Spontaneous
  Country: US (occurrence: US)
  Receive Date: 20180307
  Receipt Date: 20180307
  Transmission Date: 20180509
  Serious: No
  Sender: FDA-Public Use
  Company Number: US-ALLERGAN-1748619US

PATIENT
  Sex: Female

DRUGS (3)
  1. VIIBRYD [Suspect]
     Active Substance: VILAZODONE HYDROCHLORIDE
     Dosage: 20 MG, UNK
     Route: 065
     Dates: start: 20170825
  2. VIIBRYD [Suspect]
     Active Substance: VILAZODONE HYDROCHLORIDE
     Indication: ACCIDENTAL EXPOSURE TO PRODUCT
     Dosage: 10 MG, UNK
     Route: 065
     Dates: start: 20170825
  3. VYVANSE [Concomitant]
     Active Substance: LISDEXAMFETAMINE DIMESYLATE
     Indication: PRODUCT USED FOR UNKNOWN INDICATION
     Dosage: UNK
     Route: 065

REACTIONS (2)
  - Diarrhoea [Unknown]
  - Wrong drug administered [Unknown]

NARRATIVE: CASE EVENT DATE: 20170825
